FAERS Safety Report 4553537-9 (Version None)
Quarter: 2004Q4

REPORT INFORMATION
  Report Type: 
  Country: None (occurrence: None)
  Receive Date: 20041227
  Receipt Date: 20041006
  Transmission Date: 20050328
  Serious: No
  Sender: FDA-Public Use
  Company Number: 04P-163-0276607-00

PATIENT
  Age: 54 Year
  Sex: Female
  Weight: 95.2554 kg

DRUGS (9)
  1. HUMIRA [Suspect]
     Indication: RHEUMATOID ARTHRITIS
     Dosage: 40 MG, 1 N 2WK, SUBCUTANEOUS
     Route: 058
     Dates: start: 20040901
  2. LEVOTHYROXINE SODIUM [Concomitant]
  3. HYDROXYCHLOROQUINE PHOSPHATE [Concomitant]
  4. GABAPENTIN [Concomitant]
  5. AZATHIOPRINE [Concomitant]
  6. ESTROGENS CONJUGATED [Concomitant]
  7. CETIRIZINE HCL [Concomitant]
  8. PILOCARPINE HYDROCHLORIDE [Concomitant]
  9. METHADONE HCL [Concomitant]

REACTIONS (2)
  - INJECTION SITE BURNING [None]
  - INJECTION SITE PAIN [None]
